FAERS Safety Report 14735568 (Version 1)
Quarter: 2018Q2

REPORT INFORMATION
  Report Type: Report from Study
  Country: BR (occurrence: BR)
  Receive Date: 20180409
  Receipt Date: 20180409
  Transmission Date: 20180711
  Serious: Yes (Death, Hospitalization, Other)
  Sender: FDA-Public Use
  Company Number: BR-JNJFOC-20170413169

PATIENT
  Age: 71 Year
  Sex: Female
  Weight: 55 kg

DRUGS (1)
  1. SIMPONI [Suspect]
     Active Substance: GOLIMUMAB
     Indication: RHEUMATOID ARTHRITIS
     Route: 058
     Dates: start: 20160802

REACTIONS (5)
  - Pneumonia [Fatal]
  - Drug ineffective [Unknown]
  - Pulmonary sepsis [Fatal]
  - Rheumatoid arthritis [Unknown]
  - Infection [Recovering/Resolving]

NARRATIVE: CASE EVENT DATE: 201703
